FAERS Safety Report 8873894 (Version 1)
Quarter: 2012Q4

REPORT INFORMATION
  Report Type: 
  Country: AR (occurrence: AR)
  Receive Date: 20121030
  Receipt Date: 20121030
  Transmission Date: 20130627
  Serious: Yes (Other)
  Sender: FDA-Public Use
  Company Number: PHHY2012AR097209

PATIENT
  Sex: Male

DRUGS (3)
  1. DIOVAN [Suspect]
     Indication: HYPERTENSION
     Dosage: 1 DF (80 mg), Daily
  2. DIOVAN [Suspect]
     Dosage: 1 DF (160 mg), Daily
  3. DIOVAN [Suspect]
     Dosage: 320 mg, Daily

REACTIONS (3)
  - Cataract [Recovered/Resolved]
  - Stress [Recovered/Resolved]
  - Hypertension [Recovered/Resolved]
